FAERS Safety Report 24072076 (Version 1)
Quarter: 2024Q3

REPORT INFORMATION
  Report Type: Spontaneous
  Country: IN (occurrence: IN)
  Receive Date: 20240710
  Receipt Date: 20240710
  Transmission Date: 20241017
  Serious: Yes (Hospitalization)
  Sender: STRIDES
  Company Number: IN-STRIDES ARCOLAB LIMITED-2024SP008127

PATIENT
  Age: 65 Year
  Sex: Male

DRUGS (2)
  1. PREDNISOLONE [Suspect]
     Active Substance: PREDNISOLONE
     Indication: COVID-19
     Dosage: 16 MILLIGRAM, BID (RECEIVED CUMULATIVE DOSE 385MG)
     Route: 048
  2. PIRFENIDONE [Concomitant]
     Active Substance: PIRFENIDONE
     Indication: COVID-19
     Dosage: 400 MILLIGRAM
     Route: 065

REACTIONS (2)
  - Osteonecrosis of jaw [Unknown]
  - Off label use [Unknown]
